FAERS Safety Report 5415491-7 (Version None)
Quarter: 2007Q3

REPORT INFORMATION
  Report Type: 
  Country: None (occurrence: None)
  Receive Date: 20070813
  Receipt Date: 20070726
  Transmission Date: 20080115
  Serious: Yes (Life-Threatening)
  Sender: FDA-Public Use
  Company Number: 6036362

PATIENT
  Age: 56 Year
  Sex: Male

DRUGS (20)
  1. BISOPROLOL FUMARATE [Suspect]
     Indication: MYOCARDIAL ISCHAEMIA
     Dosage: (5 MG)
  2. AMLODIPINE [Suspect]
     Indication: HYPERTENSION
     Dosage: (10 MG)
  3. ASPIRIN [Concomitant]
  4. BENDROFLUMETHIAZIDE (BENDROFLUMETHIAZIDE) [Concomitant]
  5. BETAHISTINE (BETAHISTINE) [Concomitant]
  6. CLOPIDOGREL [Concomitant]
  7. DIPYRIDAMOLE [Concomitant]
  8. GABAPENTIN [Concomitant]
  9. GLYCERYL TRINITRATE (GLYCERYL TRINITRATE) [Concomitant]
  10. HYDRALAZINE HCL [Concomitant]
  11. IRBESARTAN [Concomitant]
  12. ISOSORBIDE MONONITRATE [Concomitant]
  13. NICORANDIL [Concomitant]
  14. NOVOMIX (INSULIN ASPART) [Concomitant]
  15. RANITIDINE [Concomitant]
  16. ROSUVASTATIN (ROSUVASTATIN) [Concomitant]
  17. THIAMINE (THIAMINE) [Concomitant]
  18. ZOPLICONE [Concomitant]
  19. ESCITALOPRAM OXALATE [Suspect]
     Indication: DEPRESSION
     Dosage: (20 MG)
     Dates: start: 20051219
  20. FRUSEMIDE [Suspect]
     Indication: DRUG USE FOR UNKNOWN INDICATION

REACTIONS (4)
  - BRADYCARDIA [None]
  - HYPOTENSION [None]
  - INTENTIONAL OVERDOSE [None]
  - SOMNOLENCE [None]
